FAERS Safety Report 5032589-6 (Version None)
Quarter: 2006Q2

REPORT INFORMATION
  Report Type: 
  Country: None (occurrence: None)
  Receive Date: 20060620
  Receipt Date: 20060602
  Transmission Date: 20061013
  Serious: Yes (Hospitalization)
  Sender: FDA-Public Use
  Company Number: US200605003008

PATIENT
  Sex: Female

DRUGS (3)
  1. FORTEO [Suspect]
     Indication: OSTEOPOROSIS
     Dates: start: 20051201
  2. FORTEO PEN (250MCG/ML) [Concomitant]
  3. PREGABALIN (PREGABALIN) [Concomitant]

REACTIONS (13)
  - ANXIETY [None]
  - CERVICAL SPINAL STENOSIS [None]
  - CONVERSION DISORDER [None]
  - CONVULSION [None]
  - FALL [None]
  - LOSS OF CONSCIOUSNESS [None]
  - NECK PAIN [None]
  - PHARMACEUTICAL PRODUCT COMPLAINT [None]
  - SHOULDER PAIN [None]
  - STRESS [None]
  - TREATMENT NONCOMPLIANCE [None]
  - TREMOR [None]
  - URINARY TRACT INFECTION [None]
